FAERS Safety Report 21861601 (Version 2)
Quarter: 2023Q1

REPORT INFORMATION
  Report Type: Report from Study
  Country: DE (occurrence: DE)
  Receive Date: 20230113
  Receipt Date: 20230316
  Transmission Date: 20230417
  Serious: Yes (Death, Hospitalization)
  Sender: FDA-Public Use
  Company Number: DE-BAYER-2022A161704

PATIENT
  Age: 55 Year
  Sex: Male
  Weight: 70 kg

DRUGS (2)
  1. REGORAFENIB [Suspect]
     Active Substance: REGORAFENIB
     Indication: Gastrooesophageal cancer
     Dosage: 90 MG, QD
     Route: 048
     Dates: start: 20221024, end: 20221102
  2. NIVOLUMAB [Suspect]
     Active Substance: NIVOLUMAB
     Indication: Gastrooesophageal cancer
     Dosage: 240 MG
     Route: 042
     Dates: start: 20221024, end: 20221024

REACTIONS (1)
  - Hepatic failure [Fatal]

NARRATIVE: CASE EVENT DATE: 20221103
